FAERS Safety Report 9955988 (Version 2)
Quarter: 2014Q1

REPORT INFORMATION
  Report Type: Report from Study
  Country: US (occurrence: US)
  Receive Date: 20140304
  Receipt Date: 20140304
  Transmission Date: 20141002
  Serious: Yes (Hospitalization)
  Sender: FDA-Public Use
  Company Number: US-ABBVIE-12P-163-1019525-00

PATIENT
  Age: 55 Year
  Sex: Female
  Weight: 59.47 kg

DRUGS (12)
  1. HUMIRA [Suspect]
     Indication: RHEUMATOID ARTHRITIS
     Dates: start: 2004
  2. METHOTREXATE [Suspect]
     Indication: RHEUMATOID ARTHRITIS
  3. METHOTREXATE [Suspect]
  4. SIMVASTATIN [Concomitant]
     Indication: PRODUCT USED FOR UNKNOWN INDICATION
  5. TENORMIN [Concomitant]
     Indication: PRODUCT USED FOR UNKNOWN INDICATION
  6. PRILOSEC [Concomitant]
     Indication: PRODUCT USED FOR UNKNOWN INDICATION
  7. FOLIC ACID [Concomitant]
     Indication: PRODUCT USED FOR UNKNOWN INDICATION
  8. FOLIC ACID [Concomitant]
  9. ATENOLOL [Concomitant]
     Indication: PRODUCT USED FOR UNKNOWN INDICATION
  10. MULTIVITAMINS [Concomitant]
     Indication: PRODUCT USED FOR UNKNOWN INDICATION
  11. VITAMIN E [Concomitant]
  12. LEXAPRO [Concomitant]
     Indication: PRODUCT USED FOR UNKNOWN INDICATION

REACTIONS (7)
  - Pneumonia [Recovered/Resolved]
  - Pulmonary hilum mass [Unknown]
  - Bursitis [Unknown]
  - Precancerous skin lesion [Unknown]
  - Dyspepsia [Unknown]
  - Pyrexia [Recovered/Resolved]
  - Rheumatoid arthritis [Unknown]
